FAERS Safety Report 5483049-X (Version None)
Quarter: 2007Q4

REPORT INFORMATION
  Report Type: 
  Country: None (occurrence: None)
  Receive Date: 20071005
  Receipt Date: 20061113
  Transmission Date: 20080405
  Serious: Yes (Other)
  Sender: FDA-Public Use
  Company Number: 6027368

PATIENT
  Age: 45 Year
  Sex: Male

DRUGS (1)
  1. TERBINAFINE (TABLET) [Suspect]
     Indication: FUNGAL SKIN INFECTION
     Dosage: 250 MG (250 MG, 1IN 1 D)
     Route: 048

REACTIONS (1)
  - FUNGAL SKIN INFECTION [None]
